FAERS Safety Report 8829446 (Version 1)
Quarter: 2012Q4

REPORT INFORMATION
  Report Type: Report from Study
  Country: AU (occurrence: AU)
  Receive Date: 20121008
  Receipt Date: 20121008
  Transmission Date: 20130627
  Serious: Yes (Other)
  Sender: FDA-Public Use
  Company Number: AU-ROCHE-1136596

PATIENT
  Age: 57 Year
  Sex: Female

DRUGS (5)
  1. ROACTEMRA [Suspect]
     Indication: RHEUMATOID ARTHRITIS
     Dosage: date when tocilizumab received 24/Sep/2012
     Route: 042
  2. PREDNISONE [Concomitant]
     Indication: RHEUMATOID ARTHRITIS
     Route: 048
     Dates: start: 2008
  3. METHOTREXATE [Concomitant]
     Indication: RHEUMATOID ARTHRITIS
     Route: 048
     Dates: start: 2011
  4. PRIMERAN [Concomitant]
     Indication: MENOPAUSE
     Route: 048
  5. LIPITOR [Concomitant]
     Route: 065
     Dates: start: 2008

REACTIONS (2)
  - Myalgia [Unknown]
  - Fall [Unknown]
